FAERS Safety Report 11395131 (Version 1)
Quarter: 2015Q3

REPORT INFORMATION
  Report Type: Spontaneous
  Country: IT (occurrence: IT)
  Receive Date: 20150819
  Receipt Date: 20150819
  Transmission Date: 20151125
  Serious: Yes (Hospitalization)
  Sender: FDA-Public Use
  Company Number: IT-PFIZER INC-2015273479

PATIENT
  Age: 92 Year
  Sex: Female

DRUGS (2)
  1. CARDIOASPIRIN [Concomitant]
     Active Substance: ASPIRIN
     Indication: CARDIOMYOPATHY
     Dosage: 1 DF, UNK
     Route: 048
     Dates: start: 19800101
  2. HALCION [Suspect]
     Active Substance: TRIAZOLAM
     Indication: ANXIETY
     Dosage: 18 DF, TOTAL
     Dates: start: 20150213, end: 20150214

REACTIONS (4)
  - Product use issue [Recovered/Resolved]
  - Intentional self-injury [Recovered/Resolved]
  - Sopor [Recovered/Resolved]
  - Overdose [Recovered/Resolved]

NARRATIVE: CASE EVENT DATE: 20150213
